FAERS Safety Report 12538838 (Version 1)
Quarter: 2016Q3

REPORT INFORMATION
  Report Type: Spontaneous
  Country: US (occurrence: US)
  Receive Date: 20160708
  Receipt Date: 20160708
  Transmission Date: 20161109
  Serious: No
  Sender: FDA-Public Use
  Company Number: US-ASTRAZENECA-2016SE71875

PATIENT
  Age: 711 Month
  Sex: Female
  Weight: 77.1 kg

DRUGS (2)
  1. ATACAND [Suspect]
     Active Substance: CANDESARTAN CILEXETIL
     Indication: HYPERTENSION
     Route: 048
     Dates: start: 2000, end: 201606
  2. ATACAND [Suspect]
     Active Substance: CANDESARTAN CILEXETIL
     Indication: RENAL DISORDER
     Route: 048
     Dates: start: 2000, end: 201606

REACTIONS (8)
  - Headache [Unknown]
  - Aortic stenosis [Unknown]
  - Cough [Unknown]
  - Nausea [Unknown]
  - Weight increased [Unknown]
  - Blood pressure increased [Unknown]
  - Drug dose omission [Unknown]
  - Product use issue [Unknown]

NARRATIVE: CASE EVENT DATE: 201606
